FAERS Safety Report 13937675 (Version 1)
Quarter: 2017Q3

REPORT INFORMATION
  Report Type: Spontaneous
  Country: GB (occurrence: GB)
  Receive Date: 20170905
  Receipt Date: 20170905
  Transmission Date: 20171127
  Serious: Yes (Other)
  Sender: FDA-Public Use
  Company Number: GB-BAYER-2017-164095

PATIENT
  Age: 94 Year
  Sex: Female
  Weight: 60 kg

DRUGS (16)
  1. HYDROXOCOBALAMIN [Concomitant]
     Active Substance: HYDROXOCOBALAMIN
     Dosage: UNK
     Dates: start: 20161115
  2. HYALURONATE SODIUM [Concomitant]
     Active Substance: HYALURONATE SODIUM
     Dosage: 1 GTT, 6ID
     Route: 047
     Dates: start: 20170621
  3. LORAZEPAM. [Concomitant]
     Active Substance: LORAZEPAM
     Dosage: 0.5 MG, QID
     Dates: start: 20170804
  4. PROMAZINE [Concomitant]
     Active Substance: PROMAZINE
     Dosage: 75 MG, QD
     Dates: start: 20170804
  5. CALCIUM CARBONATE W/COLECALCIFEROL [Concomitant]
     Active Substance: CALCIUM CARBONATE\CHOLECALCIFEROL
     Dosage: 1 DF, BID
     Dates: start: 20160818
  6. REFRESH CELLUVISC [Concomitant]
     Active Substance: CARBOXYMETHYLCELLULOSE SODIUM
     Dosage: UNK
     Route: 047
     Dates: start: 20141212
  7. LANSOPRAZOLE. [Concomitant]
     Active Substance: LANSOPRAZOLE
     Dosage: 1 DF, QOD
     Dates: start: 20160803
  8. TRIMETHOPRIM. [Concomitant]
     Active Substance: TRIMETHOPRIM
     Dosage: 1 DF, QD
     Dates: start: 20170217
  9. NITROFURANTOIN. [Concomitant]
     Active Substance: NITROFURANTOIN
     Dosage: 1 DF, BID
     Dates: start: 20170627, end: 20170702
  10. PARACETAMOL [Concomitant]
     Active Substance: ACETAMINOPHEN
     Dosage: 2 DF, UNK
     Dates: start: 20170627
  11. ACIDEX [CALCIUM CARBONATE,SODIUM ALGINATE,SODIUM BICARBONATE] [Concomitant]
     Dosage: 15 ML, TID
     Dates: start: 20141113
  12. CO-DYDRAMOL [Concomitant]
     Active Substance: ACETAMINOPHEN\DIHYDROCODEINE
     Dosage: 1 DF, QID
     Dates: start: 20160301, end: 20170808
  13. NYSTAN [Concomitant]
     Active Substance: NYSTATIN
     Dosage: 1 ML, QID
     Dates: start: 20170807, end: 20170814
  14. MONOMIL [Concomitant]
     Active Substance: ISOSORBIDE MONONITRATE
     Dosage: 0.5 DF, QD
     Dates: start: 20140423
  15. SLOW SODIUM [Concomitant]
     Dosage: 2 DF, TID
     Dates: start: 20170804
  16. CLOTRIMAZOLE. [Suspect]
     Active Substance: CLOTRIMAZOLE
     Dosage: UNK
     Dates: start: 20170810

REACTIONS (2)
  - Angioedema [Unknown]
  - Hypersensitivity [Recovered/Resolved]

NARRATIVE: CASE EVENT DATE: 20170816
